FAERS Safety Report 19100044 (Version 1)
Quarter: 2021Q2

REPORT INFORMATION
  Report Type: Spontaneous
  Country: DE (occurrence: DE)
  Receive Date: 20210407
  Receipt Date: 20210407
  Transmission Date: 20210717
  Serious: Yes (Other)
  Sender: FDA-Public Use
  Company Number: DE-TEVA-2021-DE-1897415

PATIENT
  Age: 90 Year
  Sex: Male

DRUGS (7)
  1. ALLOPURINOL?RATIOPHARM 300 MG TABLETTEN [Suspect]
     Active Substance: ALLOPURINOL
     Indication: GOUT
     Dosage: 300 MILLIGRAM DAILY; IN THE MORNING AT BREAKFAST
     Route: 048
  2. BISOPROLOL 5 ? 1A PHARMA [Suspect]
     Active Substance: BISOPROLOL FUMARATE
     Indication: HYPERTENSION
     Dosage: 5 MILLIGRAM DAILY; WITH SOME WATER IN DIFFERENT INTERVALS BETWEEN HALF AN HOUR AND A WHOLE HOUR SPRE
     Route: 048
  3. TORASEMID 1A PHARMA 2.5 MG TABLETTEN [Suspect]
     Active Substance: TORSEMIDE
     Indication: URINE OUTPUT
     Dosage: 2.5 MILLIGRAM DAILY; WITH SOME WATER IN DIFFERENT INTERVALS BETWEEN HALF AN HOUR AND A WHOLE HOUR SP
     Route: 048
  4. XARELTO [Suspect]
     Active Substance: RIVAROXABAN
     Indication: PROPHYLAXIS
     Dosage: 15 MILLIGRAM DAILY; IN THE MORNING AT BREAKFAST, ABOUT 20 MINUTES AFTER FOLSAN
     Route: 048
  5. DIGITOXIN AWD 0,07 [Concomitant]
     Dosage: .07 MILLIGRAM DAILY;
     Route: 048
     Dates: start: 20210315
  6. FOLSAN 5 MG TABLETTEN [Suspect]
     Active Substance: FOLIC ACID
     Indication: GOUT
     Dosage: 5 MILLIGRAM DAILY; ABOUT 20 MINUTES AFTER ALLOPURINOL
     Route: 048
  7. RAMIPRIL 1A PHARMA 2.5 MG TABLETTEN [Suspect]
     Active Substance: RAMIPRIL
     Indication: HYPERTENSION
     Dosage: 2.5 MILLIGRAM DAILY; WITH SOME WATER IN DIFFERENT INTERVALS BETWEEN HALF AN HOUR AND A WHOLE HOUR SP
     Route: 048

REACTIONS (2)
  - Malaise [Not Recovered/Not Resolved]
  - Arrhythmia [Not Recovered/Not Resolved]
